FAERS Safety Report 7080149-8 (Version None)
Quarter: 2010Q4

REPORT INFORMATION
  Report Type: 
  Country: None (occurrence: None)
  Receive Date: 20101103
  Receipt Date: 20101025
  Transmission Date: 20110411
  Serious: Yes (Hospitalization)
  Sender: FDA-Public Use
  Company Number: US-BIOGENIDEC-2010BI014536

PATIENT
  Age: 51 Year
  Sex: Female
  Weight: 58 kg

DRUGS (1)
  1. AVONEX [Suspect]
     Indication: MULTIPLE SCLEROSIS
     Route: 030
     Dates: start: 20061113

REACTIONS (6)
  - COMA [None]
  - CONVULSION [None]
  - FOOD POISONING [None]
  - LIVER DISORDER [None]
  - SINUSITIS [None]
  - VIRAL INFECTION [None]
